FAERS Safety Report 24126447 (Version 1)
Quarter: 2024Q3

REPORT INFORMATION
  Report Type: Report from Study
  Country: US (occurrence: US)
  Receive Date: 20240723
  Receipt Date: 20240723
  Transmission Date: 20241017
  Serious: Yes (Hospitalization)
  Sender: EISAI
  Company Number: US-Eisai-EC-2024-170453

PATIENT
  Age: 64 Year
  Sex: Male

DRUGS (4)
  1. LENVIMA [Suspect]
     Active Substance: LENVATINIB
     Indication: Hepatocellular carcinoma
     Route: 048
     Dates: start: 202308, end: 202312
  2. LENVIMA [Suspect]
     Active Substance: LENVATINIB
     Route: 048
     Dates: start: 202401, end: 202406
  3. ZYPREXA [Suspect]
     Active Substance: OLANZAPINE
     Indication: Decreased appetite
     Dosage: DOSE AND FREQUENCY UNKNOWN
     Dates: start: 202406
  4. YTTRIUM Y-90 [Suspect]
     Active Substance: YTTRIUM Y-90
     Indication: Hepatocellular carcinoma
     Dosage: DOSE AND FREQUENCY UNKNOWN
     Dates: start: 202404

REACTIONS (2)
  - Hepatic failure [Recovered/Resolved]
  - Renal failure [Recovering/Resolving]

NARRATIVE: CASE EVENT DATE: 20240626
